FAERS Safety Report 23170365 (Version 2)
Quarter: 2023Q4

REPORT INFORMATION
  Report Type: Report from Study
  Country: CA (occurrence: CA)
  Receive Date: 20231110
  Receipt Date: 20231218
  Transmission Date: 20240110
  Serious: Yes (Other)
  Sender: FDA-Public Use
  Company Number: CA-AMGEN-CANSL2023152414

PATIENT
  Age: 63 Year
  Sex: Female

DRUGS (5)
  1. AVSOLA [Suspect]
     Active Substance: INFLIXIMAB-AXXQ
     Indication: Colitis ulcerative
     Dosage: 390 MILLIGRAM, Q8WK
     Route: 065
     Dates: start: 20230824
  2. AVSOLA [Suspect]
     Active Substance: INFLIXIMAB-AXXQ
     Dosage: 5 MILLIGRAM, Q2MO
     Route: 065
  3. AVSOLA [Suspect]
     Active Substance: INFLIXIMAB-AXXQ
     Dosage: 5 MILLIGRAM/KILOGRAM, Q8WK
     Route: 065
  4. AVSOLA [Suspect]
     Active Substance: INFLIXIMAB-AXXQ
     Dosage: 5 MILLIGRAM/KILOGRAM, Q4WK
     Route: 065
  5. ABRILADA [Concomitant]
     Active Substance: ADALIMUMAB-AFZB

REACTIONS (2)
  - Psoriatic arthropathy [Unknown]
  - Somnolence [Unknown]

NARRATIVE: CASE EVENT DATE: 20230824
